FAERS Safety Report 8874824 (Version 2)
Quarter: 2012Q4

REPORT INFORMATION
  Report Type: 
  Country: JP (occurrence: JP)
  Receive Date: 20121023
  Receipt Date: 20121112
  Transmission Date: 20130627
  Serious: Yes (Death)
  Sender: FDA-Public Use
  Company Number: JP-BAYER-2012-108634

PATIENT
  Age: 65 Year
  Sex: Male
  Weight: 72 kg

DRUGS (13)
  1. NEXAVAR [Suspect]
     Indication: CARCINOMA HEPATOCELLULAR
     Dosage: 400 mg, QD
     Route: 048
     Dates: start: 20120622, end: 20120917
  2. MAINTATE [Concomitant]
     Indication: HYPERTENSION
     Dosage: Daily dose 5 mg
     Route: 048
     Dates: end: 20120924
  3. AMLODIN [Concomitant]
     Indication: HYPERTENSION
     Dosage: Daily dose 5 mg
     Route: 048
     Dates: end: 20120924
  4. RENIVACE [Concomitant]
     Indication: HYPERTENSION
     Dosage: Daily dose 5 mg
     Route: 048
     Dates: end: 20120924
  5. PARIET [Concomitant]
     Indication: REFLUX OESOPHAGITIS
     Dosage: Daily dose 10 mg
     Route: 048
     Dates: end: 20120924
  6. JANUVIA [Concomitant]
     Indication: TYPE 2 DIABETES MELLITUS
     Dosage: Daily dose 100 mg
     Route: 048
     Dates: start: 20120518, end: 20120924
  7. VOLTAREN [Concomitant]
     Indication: CANCER PAIN
     Dosage: Daily dose 75 mg
     Route: 048
     Dates: start: 20120905, end: 20120924
  8. MUCOSTA [Concomitant]
     Indication: CHRONIC GASTRITIS
     Dosage: Daily dose 20 mg
     Route: 048
     Dates: start: 20120905, end: 20120924
  9. OXYCONTIN [Concomitant]
     Indication: CANCER PAIN
     Dosage: Daily dose 280 mg
     Route: 048
     Dates: start: 20120604, end: 20120924
  10. MAGNESIUM OXIDE [Concomitant]
     Dosage: 330 mg, TID
     Route: 048
  11. SILECE [Concomitant]
     Route: 065
  12. LENDORMIN [Concomitant]
     Dosage: UNK
     Route: 048
  13. IA-CALL [Concomitant]
     Indication: CARCINOMA HEPATOCELLULAR
     Dosage: 100 mg, Q1MON
     Route: 013
     Dates: start: 20120517, end: 20120802

REACTIONS (2)
  - Interstitial lung disease [Fatal]
  - Hyponatraemia [None]
